FAERS Safety Report 7481744-4 (Version None)
Quarter: 2011Q2

REPORT INFORMATION
  Report Type: 
  Country: None (occurrence: None)
  Receive Date: 20110516
  Receipt Date: 20110510
  Transmission Date: 20111010
  Serious: Yes (Hospitalization)
  Sender: FDA-Public Use
  Company Number: B0655160A

PATIENT
  Sex: Male
  Weight: 60.6 kg

DRUGS (5)
  1. RITONAVIR [Concomitant]
     Route: 048
     Dates: start: 20050630
  2. SELZENTRY [Suspect]
     Dosage: 150MG PER DAY
     Route: 048
     Dates: start: 20050630
  3. LEXIVA [Concomitant]
     Route: 048
     Dates: start: 20050630
  4. CARNICOR [Concomitant]
     Route: 048
     Dates: start: 20060210
  5. ABACAVIR SULFATE/LAMIVUDINE [Concomitant]
     Route: 048
     Dates: start: 20050630

REACTIONS (1)
  - SQUAMOUS CELL CARCINOMA [None]
